FAERS Safety Report 4885658-5 (Version None)
Quarter: 2005Q4

REPORT INFORMATION
  Report Type: 
  Country: None (occurrence: None)
  Receive Date: 20051220
  Receipt Date: 20041027
  Transmission Date: 20060501
  Serious: Yes (Other)
  Sender: FDA-Public Use
  Company Number: HQWYE165329OCT04

PATIENT
  Age: 38 Year
  Sex: Female
  Weight: 53.57 kg

DRUGS (3)
  1. EFFEXOR XR [Suspect]
     Indication: NIGHT SWEATS
     Dosage: SEE IMAGE
     Route: 048
     Dates: start: 20040907, end: 20040927
  2. EFFEXOR XR [Suspect]
     Indication: NIGHT SWEATS
     Dosage: SEE IMAGE
     Route: 048
     Dates: start: 20041019, end: 20041020
  3. COUMADIN [Concomitant]

REACTIONS (18)
  - ANXIETY [None]
  - BLOOD POTASSIUM DECREASED [None]
  - BLOOD PRESSURE INCREASED [None]
  - BLOOD THYROID STIMULATING HORMONE DECREASED [None]
  - CHEST PAIN [None]
  - DIZZINESS [None]
  - DRUG WITHDRAWAL SYNDROME [None]
  - DRY MOUTH [None]
  - DYSPEPSIA [None]
  - EAR PAIN [None]
  - GASTROINTESTINAL HAEMORRHAGE [None]
  - HAEMATOCHEZIA [None]
  - HEADACHE [None]
  - HEART RATE INCREASED [None]
  - INFLUENZA LIKE ILLNESS [None]
  - INSOMNIA [None]
  - PARAESTHESIA [None]
  - WEIGHT DECREASED [None]
